FAERS Safety Report 8059844-X (Version None)
Quarter: 2012Q1

REPORT INFORMATION
  Report Type: 
  Country: None (occurrence: None)
  Receive Date: 20120120
  Receipt Date: 20120114
  Transmission Date: 20120608
  Serious: Yes (Other)
  Sender: FDA-Public Use
  Company Number: US-JNJFOC-20120106186

PATIENT
  Sex: Female
  Weight: 102.06 kg

DRUGS (4)
  1. REMICADE [Suspect]
     Indication: PSORIASIS
     Route: 042
  2. NSAIDS [Concomitant]
     Route: 065
  3. REMICADE [Suspect]
     Indication: PSORIATIC ARTHROPATHY
     Route: 042
  4. METHOTREXATE [Concomitant]
     Route: 065

REACTIONS (2)
  - THROMBOSIS [None]
  - CELLULITIS [None]
